FAERS Safety Report 9701722 (Version 1)
Quarter: 2013Q4

REPORT INFORMATION
  Report Type: Spontaneous
  Country: US (occurrence: US)
  Receive Date: 20131119
  Receipt Date: 20131119
  Transmission Date: 20140711
  Serious: Yes (Hospitalization, Other)
  Sender: FDA-Public Use
  Company Number: US-SAVIENT-2012S1000113

PATIENT
  Age: 60 Year
  Sex: Male

DRUGS (24)
  1. KRYSTEXXA [Suspect]
     Indication: GOUT
     Route: 042
     Dates: start: 20120816, end: 20120816
  2. KRYSTEXXA [Suspect]
     Indication: GOUT
     Route: 042
     Dates: start: 20120830, end: 20120830
  3. KRYSTEXXA [Suspect]
     Indication: GOUT
     Route: 042
     Dates: start: 20120913, end: 20120930
  4. KRYSTEXXA [Suspect]
     Indication: GOUT
     Route: 042
     Dates: start: 20121002, end: 20121002
  5. KRYSTEXXA [Suspect]
     Indication: GOUT
     Route: 042
     Dates: start: 20121016, end: 20121016
  6. KRYSTEXXA [Suspect]
     Indication: GOUT
     Route: 042
     Dates: start: 20121106, end: 20121106
  7. SOLU-MEDROL [Concomitant]
     Indication: ALLERGY PROPHYLAXIS
     Route: 042
     Dates: start: 20120816, end: 20120816
  8. SOLU-MEDROL [Concomitant]
     Indication: ALLERGY PROPHYLAXIS
     Route: 042
     Dates: start: 20120830, end: 20120830
  9. SOLU-MEDROL [Concomitant]
     Indication: ALLERGY PROPHYLAXIS
     Route: 042
     Dates: start: 20120913, end: 20120913
  10. SOLU-MEDROL [Concomitant]
     Indication: ALLERGY PROPHYLAXIS
     Route: 042
     Dates: start: 20121002, end: 20121002
  11. SOLU-MEDROL [Concomitant]
     Indication: ALLERGY PROPHYLAXIS
     Route: 042
     Dates: start: 20121016, end: 20121016
  12. SOLU-MEDROL [Concomitant]
     Indication: ALLERGY PROPHYLAXIS
     Route: 042
     Dates: start: 20121106, end: 20121106
  13. BENADRYL /00945501/ [Concomitant]
     Indication: ALLERGY PROPHYLAXIS
     Route: 048
     Dates: start: 20120816, end: 20120816
  14. BENADRYL /00945501/ [Concomitant]
     Indication: ALLERGY PROPHYLAXIS
     Route: 048
     Dates: start: 20120830, end: 20120830
  15. BENADRYL /00945501/ [Concomitant]
     Indication: ALLERGY PROPHYLAXIS
     Route: 048
     Dates: start: 20120913, end: 20120913
  16. BENADRYL /00945501/ [Concomitant]
     Indication: ALLERGY PROPHYLAXIS
     Route: 048
     Dates: start: 20121002, end: 20121002
  17. BENADRYL /00945501/ [Concomitant]
     Indication: ALLERGY PROPHYLAXIS
     Route: 048
     Dates: start: 20121016, end: 20121016
  18. BENADRYL /00945501/ [Concomitant]
     Indication: ALLERGY PROPHYLAXIS
     Route: 048
     Dates: start: 20121106, end: 20121106
  19. TYLENOL /00020001/ [Concomitant]
     Indication: ALLERGY PROPHYLAXIS
     Route: 048
     Dates: start: 20120816, end: 20120816
  20. TYLENOL /00020001/ [Concomitant]
     Indication: ALLERGY PROPHYLAXIS
     Route: 048
     Dates: start: 20120830, end: 20120830
  21. TYLENOL /00020001/ [Concomitant]
     Indication: ALLERGY PROPHYLAXIS
     Route: 048
     Dates: start: 20120913, end: 20120913
  22. TYLENOL /00020001/ [Concomitant]
     Indication: ALLERGY PROPHYLAXIS
     Route: 048
     Dates: start: 20121002, end: 20121002
  23. TYLENOL /00020001/ [Concomitant]
     Indication: ALLERGY PROPHYLAXIS
     Route: 048
     Dates: start: 20121016, end: 20121016
  24. TYLENOL /00020001/ [Concomitant]
     Indication: ALLERGY PROPHYLAXIS
     Route: 048
     Dates: start: 20121106, end: 20121106

REACTIONS (1)
  - Infusion related reaction [Recovered/Resolved]
